FAERS Safety Report 10171396 (Version 2)
Quarter: 2016Q4

REPORT INFORMATION
  Report Type: Spontaneous
  Country: CA (occurrence: CA)
  Receive Date: 20140514
  Receipt Date: 20161216
  Transmission Date: 20170206
  Serious: No
  Sender: FDA-Public Use
  Company Number: CA-009507513-1405CAN005432

PATIENT
  Age: 73 Year
  Sex: Female

DRUGS (2)
  1. APO LEVOCARB [Suspect]
     Active Substance: CARBIDOPA\LEVODOPA
     Indication: PARKINSON^S DISEASE
     Dosage: 1.0 DOSAGE FORMS, 6 EVERY 1 DAY
     Route: 048
  2. SINEMET [Suspect]
     Active Substance: CARBIDOPA\LEVODOPA
     Indication: PARKINSON^S DISEASE
     Dosage: 1.0 DOSAGE FORMS, 6 EVERY 1 DAY
     Route: 048

REACTIONS (2)
  - Product substitution issue [Unknown]
  - Drug effect decreased [Unknown]
